FAERS Safety Report 24552936 (Version 2)
Quarter: 2024Q4

REPORT INFORMATION
  Report Type: Spontaneous
  Country: FR (occurrence: FR)
  Receive Date: 20241027
  Receipt Date: 20241126
  Transmission Date: 20250115
  Serious: No
  Sender: SANDOZ
  Company Number: FR-SANDOZ-SDZ2024FR090265

PATIENT
  Age: 12 Year
  Sex: Male
  Weight: 29 kg

DRUGS (4)
  1. OMNITROPE [Suspect]
     Active Substance: SOMATROPIN
     Dosage: 1 MG, QD (NEW PEN RECEIVED ON 31-OCT-24, PEN FOR INJECTION OMNITROPE, EXCHANGE OF THE PEN AND THE CA
     Route: 058
     Dates: start: 20241025
  2. OMNITROPE [Suspect]
     Active Substance: SOMATROPIN
     Indication: Growth retardation
     Dosage: 1 MG, QD
     Route: 058
     Dates: start: 20240805
  3. OMNITROPE [Suspect]
     Active Substance: SOMATROPIN
     Dosage: 1 MG, QD (EXCHANGE OF THE PEN AND THE CARTRIDGE EARLY NOVEMBER)
     Route: 058
     Dates: start: 20241031
  4. ENANTONE LP [Concomitant]
     Active Substance: LEUPROLIDE ACETATE
     Indication: Delayed puberty
     Dosage: 1/3 MONTHS
     Route: 030
     Dates: start: 20241115

REACTIONS (2)
  - Incorrect dose administered by device [Unknown]
  - Device mechanical issue [Unknown]

NARRATIVE: CASE EVENT DATE: 20241025
